FAERS Safety Report 16925058 (Version 1)
Quarter: 2019Q4

REPORT INFORMATION
  Report Type: Spontaneous
  Country: US (occurrence: US)
  Receive Date: 20191016
  Receipt Date: 20191016
  Transmission Date: 20200122
  Serious: No
  Sender: FDA-Public Use
  Company Number: US-PFIZER INC-2019446142

PATIENT
  Age: 59 Year
  Sex: Female
  Weight: 78.47 kg

DRUGS (1)
  1. NICOTROL [Suspect]
     Active Substance: NICOTINE
     Indication: SMOKING CESSATION THERAPY
     Dosage: UNK(ONE SQUIRT EACH NOSTRIL EACH HOUR)
     Route: 045
     Dates: start: 201908

REACTIONS (1)
  - Cough [Unknown]
